FAERS Safety Report 14547734 (Version 2)
Quarter: 2018Q2

REPORT INFORMATION
  Report Type: Report from Study
  Country: None (occurrence: US)
  Receive Date: 20180219
  Receipt Date: 20180507
  Transmission Date: 20180711
  Serious: Yes (Other)
  Sender: FDA-Public Use
  Company Number: US-ABBVIE-17K-163-2018579-00

PATIENT
  Sex: Male

DRUGS (3)
  1. HUMIRA [Suspect]
     Active Substance: ADALIMUMAB
     Indication: ANKYLOSING SPONDYLITIS
     Route: 058
     Dates: start: 20170427
  2. HUMIRA [Suspect]
     Active Substance: ADALIMUMAB
     Indication: IRIDOCYCLITIS
  3. HUMIRA [Suspect]
     Active Substance: ADALIMUMAB
     Indication: RHEUMATOID ARTHRITIS

REACTIONS (18)
  - Drug effect incomplete [Unknown]
  - Visual impairment [Not Recovered/Not Resolved]
  - Injection site bruising [Recovered/Resolved]
  - Musculoskeletal stiffness [Recovered/Resolved]
  - Retinal detachment [Unknown]
  - Flatulence [Unknown]
  - Vision blurred [Recovering/Resolving]
  - Uveitis [Recovering/Resolving]
  - Cataract [Unknown]
  - Lacrimation increased [Not Recovered/Not Resolved]
  - Respiratory tract congestion [Unknown]
  - Arthralgia [Recovering/Resolving]
  - Heart rate increased [Unknown]
  - Musculoskeletal discomfort [Recovering/Resolving]
  - Photophobia [Not Recovered/Not Resolved]
  - Altered visual depth perception [Not Recovered/Not Resolved]
  - Fatigue [Unknown]
  - Headache [Recovered/Resolved]

NARRATIVE: CASE EVENT DATE: 2017
